FAERS Safety Report 19402692 (Version 1)
Quarter: 2021Q2

REPORT INFORMATION
  Report Type: Spontaneous
  Country: CN (occurrence: CN)
  Receive Date: 20210611
  Receipt Date: 20210611
  Transmission Date: 20210717
  Serious: Yes (Other)
  Sender: FDA-Public Use
  Company Number: CN-JNJFOC-20210621909

PATIENT
  Age: 66 Year
  Sex: Male

DRUGS (1)
  1. XARELTO [Suspect]
     Active Substance: RIVAROXABAN
     Indication: ANTICOAGULANT THERAPY
     Dosage: 20 MG, QD
     Route: 048
     Dates: start: 20201221, end: 20210605

REACTIONS (4)
  - Upper gastrointestinal haemorrhage [Unknown]
  - Abdominal distension [Unknown]
  - Chest discomfort [Unknown]
  - Melaena [Unknown]

NARRATIVE: CASE EVENT DATE: 20210530
